FAERS Safety Report 19014544 (Version 14)
Quarter: 2023Q4

REPORT INFORMATION
  Report Type: Other
  Country: DE (occurrence: None)
  Receive Date: 20210316
  Receipt Date: 20231214
  Transmission Date: 20240109
  Serious: Yes (Other)
  Sender: FDA-Public Use
  Company Number: DE-ROCHE-2202384

PATIENT
  Age: 50 Year
  Sex: Male
  Weight: 95 kg

DRUGS (23)
  1. OCREVUS [Suspect]
     Active Substance: OCRELIZUMAB
     Indication: Primary progressive multiple sclerosis
     Dosage: 600 MG FREQUENCY: 181 DAYS 189 DAYS 208 DAYS
     Route: 042
     Dates: start: 20180820, end: 20180821
  2. OCREVUS [Suspect]
     Active Substance: OCRELIZUMAB
     Route: 042
     Dates: start: 20180904
  3. OCREVUS [Suspect]
     Active Substance: OCRELIZUMAB
     Route: 042
     Dates: start: 20190305
  4. OCREVUS [Suspect]
     Active Substance: OCRELIZUMAB
     Route: 042
     Dates: start: 20200908
  5. OCREVUS [Suspect]
     Active Substance: OCRELIZUMAB
     Route: 042
     Dates: start: 20210312
  6. OCREVUS [Suspect]
     Active Substance: OCRELIZUMAB
     Route: 042
  7. DICLOFENAC [Suspect]
     Active Substance: DICLOFENAC
     Indication: Muscle strain
     Dosage: FOR 5 DAYS
     Route: 065
  8. EZETIMIBE [Concomitant]
     Active Substance: EZETIMIBE
     Indication: Multiple sclerosis
     Dosage: START DATE PRIOR 2015, THERAPY ONGOING
     Route: 048
  9. DALFAMPRIDINE [Concomitant]
     Active Substance: DALFAMPRIDINE
     Indication: Multiple sclerosis
     Dosage: START DATE PRIOR 2015, THERAPY ONGOING
     Route: 048
  10. BACLOFEN [Concomitant]
     Active Substance: BACLOFEN
     Indication: Multiple sclerosis
     Dosage: START DATE PRIOR 2015, THERAPY ONGOING
     Route: 048
  11. PREGABALIN [Concomitant]
     Active Substance: PREGABALIN
  12. MIRABEGRON [Concomitant]
     Active Substance: MIRABEGRON
     Indication: Multiple sclerosis
     Dosage: START DATE PRIOR 2015, THERAPY ONGOING
     Route: 048
  13. NABIXIMOLS [Concomitant]
     Active Substance: NABIXIMOLS
     Dosage: START DATE PRIOR 2015, THERAPY ONGOING, 8X1 DAY
  14. CHOLESTYRAMINE [Concomitant]
     Active Substance: CHOLESTYRAMINE
     Indication: Multiple sclerosis
     Dosage: THERAPY START PRIOR 2015, THERAPY ONGOING
     Route: 048
  15. LYRICA [Concomitant]
     Active Substance: PREGABALIN
     Indication: Multiple sclerosis
     Dosage: START DATE PRIOR 2015 THERAPY ONGING
     Route: 048
  16. MAGNESIUM [Concomitant]
     Active Substance: MAGNESIUM
     Dosage: THERAPY START PRIOR 2015 THERAPY ONGOING
     Route: 048
  17. TAMSULOSIN [Concomitant]
     Active Substance: TAMSULOSIN
  18. PERFALGAN [Concomitant]
     Active Substance: ACETAMINOPHEN
     Route: 065
     Dates: start: 20180821
  19. PERFALGAN [Concomitant]
     Active Substance: ACETAMINOPHEN
     Route: 065
     Dates: start: 20200908
  20. DIMETHINDENE [Concomitant]
     Active Substance: DIMETHINDENE
     Dosage: 1DF
     Route: 042
     Dates: start: 20180821
  21. DIMETHINDENE [Concomitant]
     Active Substance: DIMETHINDENE
     Dosage: 1DF
     Route: 042
     Dates: start: 20200908
  22. DIMETHINDENE [Concomitant]
     Active Substance: DIMETHINDENE
     Route: 042
     Dates: start: 20210312
  23. COMIRNATY (TOZINAMERAN) [Concomitant]
     Active Substance: TOZINAMERAN
     Indication: COVID-19 prophylaxis
     Dates: start: 20210624

REACTIONS (33)
  - Comminuted fracture [Recovering/Resolving]
  - Dysphagia [Recovered/Resolved]
  - Chest discomfort [Recovered/Resolved]
  - Visual impairment [Recovered/Resolved]
  - Headache [Recovered/Resolved]
  - Fatigue [Not Recovered/Not Resolved]
  - Muscular weakness [Not Recovered/Not Resolved]
  - Nail bed inflammation [Recovered/Resolved]
  - Blood pressure increased [Recovered/Resolved]
  - Feeling cold [Recovered/Resolved]
  - Fall [Unknown]
  - Muscle strain [Recovered/Resolved]
  - Hypersensitivity [Recovered/Resolved]
  - Chills [Unknown]
  - Malaise [Unknown]
  - Joint dislocation [Recovered/Resolved]
  - Muscle rupture [Unknown]
  - Pain [Recovered/Resolved]
  - Dizziness [Recovered/Resolved]
  - Balance disorder [Recovered/Resolved]
  - Asthenia [Recovered/Resolved]
  - Tremor [Recovered/Resolved]
  - Hypothermia [Recovered/Resolved]
  - Cough [Recovered/Resolved]
  - Dysphonia [Recovered/Resolved]
  - Anosmia [Recovered/Resolved]
  - Ageusia [Recovered/Resolved]
  - COVID-19 [Recovered/Resolved]
  - Abdominal pain upper [Recovered/Resolved]
  - Back pain [Recovering/Resolving]
  - Pain in extremity [Recovering/Resolving]
  - Sacral pain [Recovering/Resolving]
  - Contusion [Recovered/Resolved]

NARRATIVE: CASE EVENT DATE: 20180820
